FAERS Safety Report 13377997 (Version 1)
Quarter: 2017Q1

REPORT INFORMATION
  Report Type: Report from Study
  Country: NL (occurrence: NL)
  Receive Date: 20170328
  Receipt Date: 20170328
  Transmission Date: 20170429
  Serious: Yes (Death, Hospitalization)
  Sender: FDA-Public Use
  Company Number: NL-FERRINGPH-2016FE06809

PATIENT

DRUGS (23)
  1. DEGARELIX [Suspect]
     Active Substance: DEGARELIX
     Dosage: 240 MG, ONCE/SINGLE
     Route: 058
     Dates: start: 20150817
  2. METFORMINE [Concomitant]
     Active Substance: METFORMIN HYDROCHLORIDE
     Dosage: 500 MG, 1 TIME DAILY
     Route: 048
     Dates: start: 20161118
  3. DIPIPERON [Concomitant]
     Active Substance: PIPAMPERONE
     Dosage: 3DROPS, 2 TIMES DAILY
     Route: 048
     Dates: start: 20161118
  4. GLICLAZIDE [Concomitant]
     Active Substance: GLICLAZIDE
     Dosage: 80 MG, 2 TIMES DAILY
     Route: 048
     Dates: start: 20161118
  5. PREDNISOLONE. [Concomitant]
     Active Substance: PREDNISOLONE
     Dosage: 5 MG, 2 TIMES DAILY
     Route: 048
     Dates: start: 20161121
  6. PROBIOTICA [Concomitant]
     Active Substance: PROBIOTICS NOS
     Dosage: 1 CAPS, 2 TIMES DAILY
     Route: 048
     Dates: start: 20161123
  7. CARBASALATE CALCIUM [Concomitant]
     Active Substance: CARBASPIRIN
     Dosage: 300 MG, 1 TIME DAILY
     Route: 048
     Dates: start: 20161125, end: 20161126
  8. ENZALUTAMIDE [Concomitant]
     Active Substance: ENZALUTAMIDE
     Dosage: UNK
     Dates: start: 201609
  9. DEGARELIX [Suspect]
     Active Substance: DEGARELIX
     Indication: PROSTATE CANCER METASTATIC
     Dosage: 80 MG, MONTHLY
     Route: 058
     Dates: start: 201509
  10. PARACETAMOL [Concomitant]
     Active Substance: ACETAMINOPHEN
     Dosage: 1000 MG, 4 TIMES DAILY
     Route: 048
     Dates: start: 20161118
  11. OXYNORM [Concomitant]
     Active Substance: OXYCODONE HYDROCHLORIDE
     Dosage: 5 MG, DAILY/MAX
     Route: 048
     Dates: start: 20161118
  12. CLOPIDOGREL [Concomitant]
     Active Substance: CLOPIDOGREL BISULFATE
     Dosage: 75 MG, DAILY
     Route: 048
     Dates: start: 20161118
  13. FONDAPARINUX [Concomitant]
     Active Substance: FONDAPARINUX
     Dosage: 2.5 MG, 1 TIME DAILY
     Route: 058
     Dates: start: 20161125, end: 20161128
  14. SOTALOL HCL [Concomitant]
     Active Substance: SOTALOL
     Dosage: 40 MG, 3 TIMES DAILY
     Route: 048
     Dates: start: 20161118
  15. PANTOPRAZOL [Concomitant]
     Active Substance: PANTOPRAZOLE SODIUM
     Dosage: 20 MG, 1 TIME DAILY
     Route: 048
     Dates: start: 20161118
  16. NADROPARINE [Concomitant]
     Active Substance: NADROPARIN
     Dosage: 2850 IE, DAILY
     Route: 058
     Dates: start: 20161118
  17. PREGABALINE [Concomitant]
     Active Substance: PREGABALIN
     Dosage: 150 MG, 2 TIMES DAILY
     Route: 048
     Dates: start: 20161118
  18. LOPERAMIDE [Concomitant]
     Active Substance: LOPERAMIDE
     Dosage: 2 MG, 4 TIMES DAILY
     Route: 048
     Dates: start: 20161123
  19. FENTANYL. [Concomitant]
     Active Substance: FENTANYL
     Dosage: 50 ?G, 1 TIME DAILY
     Route: 051
     Dates: start: 20161125
  20. OXYCODON [Concomitant]
     Active Substance: OXYCODONE
     Dosage: 20 MG, 2 TIMES DAILY
     Route: 048
     Dates: start: 20161118
  21. ISOSORBIDE MONONITRATE. [Concomitant]
     Active Substance: ISOSORBIDE MONONITRATE
     Dosage: 60 MG, 1 TIME DAILY
     Route: 048
     Dates: start: 20161118
  22. CALCI CHEW D3 [Concomitant]
     Active Substance: CALCIUM CARBONATE\CHOLECALCIFEROL
     Dosage: 1 TABLET, DAILY
     Route: 048
     Dates: start: 20161118
  23. NITROFURANTOINE [Concomitant]
     Dosage: 50 MG, 4 TIMES DAILY
     Route: 048
     Dates: start: 20161124, end: 20161128

REACTIONS (3)
  - Cystitis [Unknown]
  - Prostate cancer [Unknown]
  - Myocardial infarction [Fatal]

NARRATIVE: CASE EVENT DATE: 201609
